FAERS Safety Report 5245572-2 (Version None)
Quarter: 2007Q1

REPORT INFORMATION
  Report Type: 
  Country: None (occurrence: None)
  Receive Date: 20070223
  Receipt Date: 20070212
  Transmission Date: 20070707
  Serious: Yes (Hospitalization)
  Sender: FDA-Public Use
  Company Number: UA-PFIZER INC-2007009301

PATIENT
  Age: 22 Year
  Sex: Female

DRUGS (1)
  1. DOSTINEX [Suspect]
     Indication: LACTATION PUERPERAL INCREASED
     Route: 048
     Dates: start: 20070107, end: 20070108

REACTIONS (4)
  - CONVULSION [None]
  - ELECTROENCEPHALOGRAM ABNORMAL [None]
  - ILL-DEFINED DISORDER [None]
  - SYNCOPE [None]
